FAERS Safety Report 5823276-2 (Version None)
Quarter: 2008Q3

REPORT INFORMATION
  Report Type: 
  Country: None (occurrence: None)
  Receive Date: 20080724
  Receipt Date: 20080724
  Transmission Date: 20090109
  Serious: Yes (Hospitalization)
  Sender: FDA-Public Use
  Company Number: None

PATIENT
  Age: 57 Year
  Sex: Male
  Weight: 77.1115 kg

DRUGS (2)
  1. LYRICA [Suspect]
     Indication: PAIN
     Dosage: 300MG NIGHTLY PO
     Route: 048
     Dates: start: 20071001, end: 20080305
  2. INTERFERON AND RIBAVARIN [Concomitant]

REACTIONS (3)
  - DYSSTASIA [None]
  - FALL [None]
  - VERTIGO [None]
